FAERS Safety Report 7847107-4 (Version None)
Quarter: 2011Q4

REPORT INFORMATION
  Report Type: 
  Country: None (occurrence: None)
  Receive Date: 20111025
  Receipt Date: 20111014
  Transmission Date: 20120403
  Serious: Yes (Hospitalization)
  Sender: FDA-Public Use
  Company Number: US-MERCK-1110USA02841

PATIENT
  Sex: Female

DRUGS (1)
  1. INVANZ [Suspect]
     Indication: DIVERTICULITIS
     Route: 065

REACTIONS (1)
  - DRUG INEFFECTIVE [None]
